FAERS Safety Report 8540691-7 (Version None)
Quarter: 2012Q3

REPORT INFORMATION
  Report Type: 
  Country: None (occurrence: None)
  Receive Date: 20120726
  Receipt Date: 20120718
  Transmission Date: 20120928
  Serious: Yes (Other)
  Sender: FDA-Public Use
  Company Number: CO-JNJFOC-20120710216

PATIENT
  Age: 47 Year
  Sex: Female

DRUGS (2)
  1. REMICADE [Suspect]
     Route: 042
     Dates: start: 20110802
  2. REMICADE [Suspect]
     Indication: RHEUMATOID ARTHRITIS
     Route: 042
     Dates: start: 20120529

REACTIONS (6)
  - INFUSION RELATED REACTION [None]
  - TACHYCARDIA [None]
  - BLOOD PRESSURE DECREASED [None]
  - PRURITUS [None]
  - ERYTHEMA [None]
  - PAIN IN EXTREMITY [None]
